FAERS Safety Report 16122642 (Version 1)
Quarter: 2019Q1

REPORT INFORMATION
  Report Type: Spontaneous
  Country: US (occurrence: US)
  Receive Date: 20190222
  Receipt Date: 20190222
  Transmission Date: 20190418
  Serious: Yes (Disabling)
  Sender: FDA-Public Use
  Company Number: None

PATIENT

DRUGS (21)
  1. HYDRALAZINE [Concomitant]
     Active Substance: HYDRALAZINE HYDROCHLORIDE
  2. SERTRALINE [Concomitant]
     Active Substance: SERTRALINE HYDROCHLORIDE
  3. COENZYME Q10 [Concomitant]
     Active Substance: UBIDECARENONE
  4. ESOMEPRAZOLE. [Concomitant]
     Active Substance: ESOMEPRAZOLE MAGNESIUM
  5. AZO [Concomitant]
     Active Substance: PHENAZOPYRIDINE HYDROCHLORIDE
  6. CARVEDILOL. [Concomitant]
     Active Substance: CARVEDILOL
  7. CELECOXIB. [Concomitant]
     Active Substance: CELECOXIB
  8. CIPROFLOXACIN HYDROCHLORIDE. [Suspect]
     Active Substance: CIPROFLOXACIN HYDROCHLORIDE
     Indication: URINARY TRACT INFECTION
     Dosage: ?          QUANTITY:250 MG MILLIGRAM(S);?
     Route: 048
     Dates: start: 20181012, end: 20181016
  9. LEVOTHYROXINE. [Concomitant]
     Active Substance: LEVOTHYROXINE
  10. LISINOPRIL. [Concomitant]
     Active Substance: LISINOPRIL
  11. MULTI-VITAMIN [Concomitant]
     Active Substance: .ALPHA.-TOCOPHEROL ACETATE, DL-\ASCORBIC ACID\CYANOCOBALAMIN\FLUORIDE ION\FOLIC ACID\NIACIN\PYRIDOXINE\RIBOFLAVIN\THIAMINE\VITAMIN A\VITAMIN D
  12. ALPRAZOLAM. [Concomitant]
     Active Substance: ALPRAZOLAM
  13. BUSPIRONE HCL [Concomitant]
     Active Substance: BUSPIRONE HYDROCHLORIDE
  14. GLIPIZIDE. [Concomitant]
     Active Substance: GLIPIZIDE
  15. RANEXA SR [Concomitant]
  16. MAGNESIUM [Concomitant]
     Active Substance: MAGNESIUM
  17. OMEGA 3 [Suspect]
     Active Substance: OMEGA-3 FATTY ACIDS
  18. BIOTIN [Concomitant]
     Active Substance: BIOTIN
  19. NIFEDIPINE. [Concomitant]
     Active Substance: NIFEDIPINE
  20. D-3 [Concomitant]
     Active Substance: CHOLECALCIFEROL
  21. RED YEAST RICE [Concomitant]
     Active Substance: DIETARY SUPPLEMENT

REACTIONS (13)
  - Eye pain [None]
  - Muscle twitching [None]
  - Dyskinesia [None]
  - Palpitations [None]
  - Condition aggravated [None]
  - Arthralgia [None]
  - Muscle spasms [None]
  - Joint stiffness [None]
  - Visual impairment [None]
  - Musculoskeletal stiffness [None]
  - Crepitations [None]
  - Ocular hyperaemia [None]
  - Coccydynia [None]

NARRATIVE: CASE EVENT DATE: 20181016
